FAERS Safety Report 9376071 (Version 1)
Quarter: 2013Q2

REPORT INFORMATION
  Report Type: Spontaneous
  Country: BR (occurrence: BR)
  Receive Date: 20130629
  Receipt Date: 20130629
  Transmission Date: 20140414
  Serious: Yes (Other)
  Sender: FDA-Public Use
  Company Number: BR-ELI_LILLY_AND_COMPANY-BR201212000747

PATIENT
  Age: 37 Year
  Sex: Male
  Weight: 84 kg

DRUGS (4)
  1. ZYPREXA [Suspect]
     Indication: SCHIZOPHRENIA
     Dosage: 10 MG, EACH EVENING
     Route: 048
     Dates: start: 2003
  2. ZYPREXA [Suspect]
     Dosage: 10 MG, QD
     Route: 048
  3. ZYPREXA [Suspect]
     Dosage: 5 MG, QD
  4. AMPLICTIL [Concomitant]
     Indication: INSOMNIA
     Dosage: 50 MG, QD
     Dates: start: 201304

REACTIONS (12)
  - Convulsion [Unknown]
  - Delirium [Unknown]
  - Hallucination, auditory [Unknown]
  - Hallucination, visual [Unknown]
  - Hunger [Unknown]
  - Agitation [Unknown]
  - Fatigue [Unknown]
  - Somnolence [Unknown]
  - Weight increased [Not Recovered/Not Resolved]
  - Asthenia [Not Recovered/Not Resolved]
  - Incorrect dose administered [Not Recovered/Not Resolved]
  - Feeling abnormal [Not Recovered/Not Resolved]
